FAERS Safety Report 24697463 (Version 2)
Quarter: 2024Q4

REPORT INFORMATION
  Report Type: Spontaneous
  Country: ES (occurrence: ES)
  Receive Date: 20241204
  Receipt Date: 20241209
  Transmission Date: 20250115
  Serious: Yes (Other)
  Sender: NOVARTIS
  Company Number: ES-002147023-NVSC2024ES230216

PATIENT
  Age: 4 Year
  Sex: Female

DRUGS (2)
  1. TRAMETINIB [Suspect]
     Active Substance: TRAMETINIB
     Indication: Brain stem glioma
     Dosage: UNK
     Route: 065
  2. TRAMETINIB [Suspect]
     Active Substance: TRAMETINIB
     Indication: Neurofibromatosis

REACTIONS (9)
  - Eczema [Recovered/Resolved]
  - Loose anagen syndrome [Recovered/Resolved]
  - Angular cheilitis [Recovered/Resolved]
  - Dermatitis [Recovered/Resolved]
  - Drug reaction with eosinophilia and systemic symptoms [Recovered/Resolved]
  - Hepatic enzyme increased [Recovered/Resolved]
  - Non-scarring alopecia [Recovered/Resolved]
  - Stomatitis [Recovered/Resolved]
  - Dermatitis exfoliative generalised [Recovered/Resolved]
